FAERS Safety Report 10731079 (Version 1)
Quarter: 2015Q1

REPORT INFORMATION
  Report Type: Spontaneous
  Country: MX (occurrence: MX)
  Receive Date: 20150122
  Receipt Date: 20150122
  Transmission Date: 20150721
  Serious: Yes (Death, Other)
  Sender: FDA-Public Use
  Company Number: PHHY2015MX007511

PATIENT
  Age: 15 Year
  Sex: Female

DRUGS (2)
  1. AZATHIOPRINE. [Suspect]
     Active Substance: AZATHIOPRINE
     Indication: SYSTEMIC LUPUS ERYTHEMATOSUS
     Route: 065
  2. PREDNISONE. [Suspect]
     Active Substance: PREDNISONE
     Indication: SYSTEMIC LUPUS ERYTHEMATOSUS
     Route: 065

REACTIONS (11)
  - Cerebral haemorrhage [Fatal]
  - Epilepsy [Unknown]
  - Burkholderia cepacia complex infection [Unknown]
  - Tuberculosis of central nervous system [Unknown]
  - Immunodeficiency [Unknown]
  - Candida infection [Unknown]
  - Mycobacterial infection [Fatal]
  - Urinary tract infection [Unknown]
  - Pneumocystis jirovecii infection [Unknown]
  - Granuloma [Unknown]
  - Acid fast bacilli infection [Unknown]
